FAERS Safety Report 9450699 (Version 1)
Quarter: 2013Q3

REPORT INFORMATION
  Report Type: Spontaneous
  Country: GR (occurrence: None)
  Receive Date: 20130807
  Receipt Date: 20130807
  Transmission Date: 20140515
  Serious: Yes (Hospitalization)
  Sender: FDA-Public Use
  Company Number: AUR-APL-2013-02370

PATIENT
  Age: 73 Year
  Sex: Female

DRUGS (2)
  1. CLOPIDOGREL (CLOPIDOGREL) [Suspect]
     Indication: PULMONARY EMBOLISM
  2. COUMADIN (WARFARIN SODIUM) [Suspect]
     Indication: PULMONARY EMBOLISM

REACTIONS (2)
  - Breast haematoma [None]
  - Spontaneous haematoma [None]
